FAERS Safety Report 4833383-9 (Version None)
Quarter: 2005Q4

REPORT INFORMATION
  Report Type: 
  Country: None (occurrence: None)
  Receive Date: 20051117
  Receipt Date: 20051107
  Transmission Date: 20060501
  Serious: Yes (Other)
  Sender: FDA-Public Use
  Company Number: HQWYE440007NOV05

PATIENT
  Age: 88 Year
  Sex: Female

DRUGS (4)
  1. PANTO             (PANTOPRAZOLE, INJECTION) [Suspect]
     Indication: DUODENAL ULCER HAEMORRHAGE
     Dosage: 8 MG 1X PER 1 HR, INTRAVENOUS
     Route: 042
     Dates: start: 20000911, end: 20000914
  2. VERAPAMIL [Concomitant]
  3. METOPROLOL TARTRATE [Concomitant]
  4. LASIX [Concomitant]

REACTIONS (1)
  - TINNITUS [None]
